FAERS Safety Report 8513743-5 (Version None)
Quarter: 2012Q3

REPORT INFORMATION
  Report Type: 
  Country: None (occurrence: None)
  Receive Date: 20120705
  Receipt Date: 20120619
  Transmission Date: 20120928
  Serious: Yes (Death, Other)
  Sender: FDA-Public Use
  Company Number: 2012MA006708

PATIENT
  Age: 39 Year
  Sex: Male

DRUGS (5)
  1. DIAZEPAM [Concomitant]
  2. CITALOPRAM HYDROBROMIDE [Suspect]
     Indication: DEPRESSED MOOD
     Dosage: 20 MG;;PO
     Route: 048
     Dates: start: 20101001, end: 20101018
  3. OLANZAPINE [Concomitant]
  4. ZOPICLONE [Concomitant]
  5. DULOXETINE HYDROCHLORIDE [Suspect]
     Indication: AGITATED DEPRESSION
     Dosage: 60 MG;UNK;PO
     Route: 048
     Dates: start: 20101019, end: 20101229

REACTIONS (1)
  - SUICIDAL IDEATION [None]
